FAERS Safety Report 4780659-X (Version None)
Quarter: 2005Q3

REPORT INFORMATION
  Report Type: 
  Country: None (occurrence: None)
  Receive Date: 20050926
  Receipt Date: 20050916
  Transmission Date: 20060218
  Serious: Yes (Disabling, Other)
  Sender: FDA-Public Use
  Company Number: 2005069805

PATIENT
  Sex: Female
  Weight: 126.1 kg

DRUGS (8)
  1. LIPITOR [Suspect]
     Indication: BLOOD CHOLESTEROL INCREASED
     Dosage: 10 MG (10 MG, 1 IN 1 D), ORAL
     Route: 048
     Dates: start: 20030101, end: 20040801
  2. GLUCOPHAGE [Concomitant]
  3. METOPROLOL TARTRATE [Concomitant]
  4. THYROID TAB [Concomitant]
  5. ANTIHYPERTENSIVES (ANTIHYPERTENSIVES) [Concomitant]
  6. BETOPTIC [Concomitant]
  7. ZESTRIL [Concomitant]
  8. IRON (IRON) [Concomitant]

REACTIONS (4)
  - ACTIVITIES OF DAILY LIVING IMPAIRED [None]
  - BLINDNESS [None]
  - MUSCULAR WEAKNESS [None]
  - MYALGIA [None]
